FAERS Safety Report 16273892 (Version 1)
Quarter: 2019Q2

REPORT INFORMATION
  Report Type: Spontaneous
  Country: US (occurrence: US)
  Receive Date: 20190506
  Receipt Date: 20190506
  Transmission Date: 20190711
  Serious: Yes (Other)
  Sender: FDA-Public Use
  Company Number: US-LUPIN PHARMACEUTICALS INC.-2019-02752

PATIENT
  Sex: Female

DRUGS (1)
  1. GAVILYTE - N [Suspect]
     Active Substance: POLYETHYLENE GLYCOL 3350\POTASSIUM CHLORIDE\SODIUM BICARBONATE\SODIUM CHLORIDE
     Indication: BOWEL PREPARATION
     Dosage: UNK ( DRANK A THIRD OF THE BOTTLE SO FAR)
     Route: 048
     Dates: start: 20190424

REACTIONS (5)
  - Nausea [Unknown]
  - Rectal haemorrhage [Unknown]
  - Incorrect dose administered [Unknown]
  - Vomiting projectile [Unknown]
  - Abdominal pain [Unknown]

NARRATIVE: CASE EVENT DATE: 20190424
